FAERS Safety Report 17092970 (Version 2)
Quarter: 2020Q1

REPORT INFORMATION
  Report Type: Spontaneous
  Country: ZA (occurrence: ZA)
  Receive Date: 20191129
  Receipt Date: 20200101
  Transmission Date: 20200409
  Serious: Yes (Other)
  Sender: FDA-Public Use
  Company Number: ZA-ASTRAZENECA-2019SF67552

PATIENT
  Sex: Male

DRUGS (3)
  1. AZOR [Concomitant]
     Active Substance: AMLODIPINE BESYLATE\OLMESARTAN MEDOXOMIL
  2. TRUSTAN [Suspect]
     Active Substance: ESOMEPRAZOLE
     Route: 048
  3. DORMONOCT [Concomitant]
     Active Substance: LOPRAZOLAM
     Dosage: AT NIGHT

REACTIONS (8)
  - Sinonasal obstruction [Recovered/Resolved]
  - Tinnitus [Recovered/Resolved]
  - Constipation [Recovered/Resolved]
  - Feeling abnormal [Recovered/Resolved]
  - Blood pressure increased [Unknown]
  - Micturition urgency [Unknown]
  - Urinary incontinence [Unknown]
  - Pollakiuria [Unknown]
